FAERS Safety Report 6508094-4 (Version None)
Quarter: 2009Q4

REPORT INFORMATION
  Report Type: 
  Country: None (occurrence: None)
  Receive Date: 20091201
  Receipt Date: 20090827
  Transmission Date: 20100525
  Serious: Yes (Hospitalization)
  Sender: FDA-Public Use
  Company Number: 2009-194910-NL

PATIENT
  Age: 41 Year
  Sex: Female
  Weight: 71.6683 kg

DRUGS (1)
  1. NUVARING [Suspect]
     Indication: CONTRACEPTION
     Dosage: 1 DF;
     Dates: start: 20070601, end: 20070726

REACTIONS (2)
  - MIGRAINE [None]
  - PULMONARY EMBOLISM [None]
